FAERS Safety Report 6573668-1 (Version None)
Quarter: 2010Q1

REPORT INFORMATION
  Report Type: 
  Country: None (occurrence: None)
  Receive Date: 20100208
  Receipt Date: 20100201
  Transmission Date: 20100710
  Serious: Yes (Hospitalization)
  Sender: FDA-Public Use
  Company Number: US-SANOFI-AVENTIS-2009SA010495

PATIENT
  Age: 59 Year
  Sex: Female
  Weight: 118 kg

DRUGS (29)
  1. OXALIPLATIN [Suspect]
     Indication: NEOPLASM MALIGNANT
     Dosage: 155 MG, 1 IN 2 WEEKS
     Route: 042
     Dates: start: 20090722, end: 20090722
  2. OXALIPLATIN [Suspect]
     Dosage: 155 MG, 1 IN 2 WEEKS
     Route: 042
     Dates: start: 20090722, end: 20090722
  3. OXALIPLATIN [Suspect]
     Dosage: 155 MG, 1 IN 2 WEEKS
     Route: 042
     Dates: start: 20090610, end: 20090610
  4. OXALIPLATIN [Suspect]
     Dosage: 155 MG, 1 IN 2 WEEKS
     Route: 042
     Dates: start: 20090610, end: 20090610
  5. INVESTIGATIONAL DRUG [Suspect]
     Indication: NEOPLASM MALIGNANT
     Dosage: BLINDED, 1 IN 2 WEEKS
     Route: 042
     Dates: start: 20090722, end: 20090722
  6. INVESTIGATIONAL DRUG [Suspect]
     Dosage: BLINDED, 1 IN 2 WEEKS
     Route: 042
     Dates: start: 20090722, end: 20090722
  7. INVESTIGATIONAL DRUG [Suspect]
     Dosage: BLINDED, 1 IN 2 WEEKS
     Route: 042
     Dates: start: 20090610, end: 20090610
  8. INVESTIGATIONAL DRUG [Suspect]
     Dosage: BLINDED, 1 IN 2 WEEKS
     Route: 042
     Dates: start: 20090610, end: 20090610
  9. FOLINIC ACID [Suspect]
     Indication: NEOPLASM MALIGNANT
     Dosage: 735 MG, 1 IN 2 WEEKS
     Route: 042
     Dates: start: 20090722, end: 20090722
  10. FOLINIC ACID [Suspect]
     Dosage: 735 MG, 1 IN 2 WEEKS
     Route: 042
     Dates: start: 20090722, end: 20090722
  11. FOLINIC ACID [Suspect]
     Dosage: 735 MG, 1 IN 2 WEEKS
     Route: 042
     Dates: start: 20090610, end: 20090610
  12. FOLINIC ACID [Suspect]
     Dosage: 735 MG, 1 IN 2 WEEKS
     Route: 042
     Dates: start: 20090610, end: 20090610
  13. FLUOROURACIL [Suspect]
     Indication: NEOPLASM MALIGNANT
     Dosage: 735 MG, 1 IN 2 WEEKS
     Route: 042
     Dates: start: 20090610, end: 20090610
  14. FLUOROURACIL [Suspect]
     Dosage: 735 MG, 1 IN 2 WEEKS
     Route: 042
     Dates: start: 20090610, end: 20090610
  15. FLUOROURACIL [Suspect]
     Dosage: 4400 MG, 1 IN 2 WEEKS
     Route: 042
     Dates: start: 20090722, end: 20090722
  16. FLUOROURACIL [Suspect]
     Dosage: 4400 MG, 1 IN 2 WEEKS
     Route: 042
     Dates: start: 20090722, end: 20090722
  17. BEVACIZUMAB [Suspect]
     Indication: NEOPLASM MALIGNANT
     Dosage: 360 MG, 1 IN 2 WEEKS
     Route: 042
     Dates: start: 20090722, end: 20090722
  18. BEVACIZUMAB [Suspect]
     Dosage: 360 MG, 1 IN 2 WEEKS
     Route: 042
     Dates: start: 20090722, end: 20090722
  19. BEVACIZUMAB [Suspect]
     Dosage: 360 MG, 1 IN 2 WEEKS
     Route: 042
     Dates: start: 20090610, end: 20090610
  20. BEVACIZUMAB [Suspect]
     Dosage: 360 MG, 1 IN 2 WEEKS
     Route: 042
     Dates: start: 20090610, end: 20090610
  21. ACETAMINOPHEN AND HYDROCODONE BITARTRATE [Concomitant]
     Dosage: 1 G, 4 IN 1 DAY
     Route: 048
  22. ACETAMINOPHEN [Concomitant]
     Dosage: 4 MG, 1 IN 1 DAY
     Route: 048
  23. ESCITALOPRAM [Concomitant]
     Dosage: 100 MG, 1 IN 1 DAY
     Route: 048
  24. FUROSEMIDE [Concomitant]
     Dosage: 2 MG, 1 IN 1 DAY
     Route: 048
  25. GLIMEPIRIDE [Concomitant]
     Dosage: 20 MG, 1 IN 1 DAY
     Route: 048
  26. METOPROLOL TARTRATE [Concomitant]
     Dosage: 20 MG, 1 IN 1 DAY
     Route: 048
  27. INSULIN DETEMIR [Concomitant]
     Dosage: 40 MG, 2 IN 1 DAY
     Route: 058
  28. INSULIN LISPRO [Concomitant]
     Dosage: 10 MG, 1 IN 1 DAY
     Route: 058
  29. HYDROCHLOROTHIAZIDE [Concomitant]
     Dosage: 40 MG, 2 IN 1 DAY
     Route: 048

REACTIONS (2)
  - ABDOMINAL PAIN [None]
  - WOUND DEHISCENCE [None]
